FAERS Safety Report 8887456 (Version 1)
Quarter: 2012Q4

REPORT INFORMATION
  Report Type: Spontaneous
  Country: DE (occurrence: None)
  Receive Date: 20121031
  Receipt Date: 20121031
  Transmission Date: 20130627
  Serious: Yes (Other)
  Sender: FDA-Public Use
  Company Number: AUR-APL-2012-04548

PATIENT
  Sex: Male
  Weight: 85 kg

DRUGS (5)
  1. SIMVASTATIN (SIMVASTATIN) [Suspect]
     Indication: HYPERLIPIDAEMIA
     Dosage: 10-20 mg daily, Oral
     Route: 048
     Dates: start: 201106, end: 201210
  2. PRAVASTATIN [Suspect]
     Dosage: 30 mg (30 mg, 1 in 1 D),  Oral
     Route: 048
     Dates: start: 200506
  3. TREDAPTIVE (NICOTINIC ACID W/ LAROPIPRANT) [Suspect]
     Dosage: 1000 mg [1000 mg, 1 in 1 D] , Oral
     Route: 048
     Dates: start: 201007, end: 201010
  4. FLUVASTATIN (FLUVASTATIN) [Suspect]
     Dosage: 20 mg (20 mg, 1 in 1 D), Oral
     Route: 048
     Dates: start: 200509
  5. EZETROL (EZETIMIBE) [Suspect]
     Dosage: 10 mg (10 mg, 1 in 1 D), Oral
     Route: 048
     Dates: start: 200608

REACTIONS (7)
  - Myalgia [None]
  - Abdominal discomfort [None]
  - Nausea [None]
  - Diarrhoea [None]
  - Pruritus [None]
  - Rash [None]
  - Faecal incontinence [None]
